FAERS Safety Report 18932073 (Version 3)
Quarter: 2023Q1

REPORT INFORMATION
  Report Type: Spontaneous
  Country: GB (occurrence: GB)
  Receive Date: 20210224
  Receipt Date: 20230317
  Transmission Date: 20230418
  Serious: Yes (Hospitalization, Other)
  Sender: FDA-Public Use
  Company Number: GB-AMGEN-GBRSP2021026507

PATIENT
  Age: 49 Year
  Sex: Female
  Weight: 64 kg

DRUGS (11)
  1. ADALIMUMAB [Suspect]
     Active Substance: ADALIMUMAB
     Indication: Psoriasis
     Dosage: 40 MILLIGRAM, Q2WK
     Route: 065
     Dates: start: 20190114, end: 20190429
  2. ADALIMUMAB [Suspect]
     Active Substance: ADALIMUMAB
     Dosage: 40 MILLIGRAM, QWK
     Route: 065
     Dates: start: 20190429, end: 20200801
  3. ADALIMUMAB [Suspect]
     Active Substance: ADALIMUMAB
     Dosage: 40 MILLIGRAM, Q2WK
     Route: 065
     Dates: start: 20201012
  4. Adcal [Concomitant]
     Dosage: UNK
     Dates: start: 20200912
  5. CLOBAZAM [Concomitant]
     Active Substance: CLOBAZAM
     Dosage: UNK
     Dates: start: 20200912
  6. HYDROXOCOBALAMIN [Concomitant]
     Active Substance: HYDROXOCOBALAMIN
     Dosage: UNK
     Dates: start: 20200912
  7. COVID-19 vaccine [Concomitant]
     Dosage: UNK
     Dates: start: 20210306, end: 20210306
  8. COVID-19 vaccine [Concomitant]
     Dosage: UNK
     Dates: start: 20211118, end: 20211118
  9. COVID-19 vaccine [Concomitant]
     Dosage: UNK
     Dates: start: 20220612, end: 20220612
  10. LEVETIRACETAM [Concomitant]
     Active Substance: LEVETIRACETAM
     Dosage: UNK
     Dates: start: 20130615
  11. ENSTILAR [Concomitant]
     Active Substance: BETAMETHASONE DIPROPIONATE\CALCIPOTRIENE HYDRATE
     Dosage: UNK
     Dates: start: 20191111

REACTIONS (10)
  - Escherichia urinary tract infection [Recovered/Resolved]
  - Herpes simplex encephalitis [Recovered/Resolved]
  - Staphylococcal bacteraemia [Recovered/Resolved]
  - Device related sepsis [Recovered/Resolved]
  - Seizure [Recovered/Resolved]
  - Behaviour disorder [Not Recovered/Not Resolved]
  - Mania [Unknown]
  - Polydipsia [Unknown]
  - Off label use [Unknown]
  - Confusional state [Not Recovered/Not Resolved]

NARRATIVE: CASE EVENT DATE: 20190429
